FAERS Safety Report 8973523 (Version 1)
Quarter: 2012Q4

REPORT INFORMATION
  Report Type: 
  Country: US (occurrence: US)
  Receive Date: 20121218
  Receipt Date: 20121218
  Transmission Date: 20130627
  Serious: No
  Sender: FDA-Public Use
  Company Number: US-BRISTOL-MYERS SQUIBB COMPANY-16389900

PATIENT
  Age: 40 Year
  Sex: Female

DRUGS (3)
  1. ABILIFY [Suspect]
  2. PHENTERMINE [Concomitant]
  3. SEROQUEL [Concomitant]

REACTIONS (2)
  - Granulocytopenia [Unknown]
  - Leukopenia [Unknown]
